FAERS Safety Report 25836146 (Version 1)
Quarter: 2025Q3

REPORT INFORMATION
  Report Type: Spontaneous
  Country: US (occurrence: US)
  Receive Date: 20250923
  Receipt Date: 20250923
  Transmission Date: 20251020
  Serious: No
  Sender: APOTEX
  Company Number: US-APOTEX-2025AP030282

PATIENT
  Age: 10 Year
  Sex: Female

DRUGS (8)
  1. LATANOPROST [Suspect]
     Active Substance: LATANOPROST
     Indication: Open angle glaucoma
     Route: 065
  2. LATANOPROST [Suspect]
     Active Substance: LATANOPROST
     Indication: Developmental glaucoma
  3. TIMOLOL [Suspect]
     Active Substance: TIMOLOL
     Indication: Open angle glaucoma
     Route: 065
  4. TIMOLOL [Suspect]
     Active Substance: TIMOLOL
     Indication: Developmental glaucoma
  5. BRIMONIDINE [Suspect]
     Active Substance: BRIMONIDINE TARTRATE
     Indication: Open angle glaucoma
     Route: 065
  6. BRIMONIDINE [Suspect]
     Active Substance: BRIMONIDINE TARTRATE
     Indication: Developmental glaucoma
  7. DORZOLAMIDE [Suspect]
     Active Substance: DORZOLAMIDE
     Indication: Open angle glaucoma
     Route: 065
  8. DORZOLAMIDE [Suspect]
     Active Substance: DORZOLAMIDE
     Indication: Developmental glaucoma

REACTIONS (1)
  - Treatment noncompliance [Unknown]
